FAERS Safety Report 10242837 (Version 2)
Quarter: 2014Q3

REPORT INFORMATION
  Report Type: Spontaneous
  Country: US (occurrence: US)
  Receive Date: 20140618
  Receipt Date: 20140813
  Transmission Date: 20150326
  Serious: No
  Sender: FDA-Public Use
  Company Number: US-009507513-1406USA001499

PATIENT
  Sex: Female

DRUGS (1)
  1. IMPLANON [Suspect]
     Active Substance: ETONOGESTREL
     Dosage: 68 MG, UNK
     Route: 059
     Dates: start: 201012

REACTIONS (3)
  - Incorrect drug administration duration [Unknown]
  - Medical device complication [Unknown]
  - Weight increased [Unknown]

NARRATIVE: CASE EVENT DATE: 201312
